FAERS Safety Report 5789271-7 (Version None)
Quarter: 2008Q2

REPORT INFORMATION
  Report Type: 
  Country: None (occurrence: None)
  Receive Date: 20080626
  Receipt Date: 20080214
  Transmission Date: 20081010
  Serious: No
  Sender: FDA-Public Use
  Company Number: US-ASTRAZENECA-2008UW03117

PATIENT
  Age: 6 Year
  Sex: Female
  Weight: 15.4 kg

DRUGS (3)
  1. PULMICORT FLEXHALER [Suspect]
     Indication: LUNG DISORDER
     Route: 055
  2. SINGULAIR [Concomitant]
  3. CLARITIN [Concomitant]

REACTIONS (3)
  - EPISTAXIS [None]
  - MUSCLE DISORDER [None]
  - TOOTH LOSS [None]
